FAERS Safety Report 14075351 (Version 2)
Quarter: 2017Q4

REPORT INFORMATION
  Report Type: Spontaneous
  Country: FR (occurrence: FR)
  Receive Date: 20171010
  Receipt Date: 20171102
  Transmission Date: 20180321
  Serious: Yes (Hospitalization)
  Sender: FDA-Public Use
  Company Number: FR-B. BRAUN MEDICAL INC.-2029535

PATIENT
  Age: 23 Year
  Sex: Female

DRUGS (15)
  1. METRONIDAZOLE. [Suspect]
     Active Substance: METRONIDAZOLE
     Indication: COLITIS
     Route: 042
     Dates: start: 20170829, end: 20170830
  2. CYTARABINE. [Suspect]
     Active Substance: CYTARABINE
     Route: 037
     Dates: start: 20170810, end: 20170817
  3. DEPO-MEDROL [Suspect]
     Active Substance: METHYLPREDNISOLONE ACETATE
     Route: 037
     Dates: start: 20170810, end: 20170817
  4. CASPOFUNGIN [Concomitant]
     Active Substance: CASPOFUNGIN
  5. ACICLOVIR [Suspect]
     Active Substance: ACYCLOVIR
     Route: 042
     Dates: start: 20170924
  6. VANCOMYCIN HYDROCHLORIDE. [Suspect]
     Active Substance: VANCOMYCIN HYDROCHLORIDE
     Route: 042
  7. TIENAM (IMIPENEM) [Suspect]
     Active Substance: CILASTATIN SODIUM\IMIPENEM
     Route: 042
     Dates: start: 20170825
  8. AMIKLIN [Concomitant]
     Active Substance: AMIKACIN SULFATE
  9. TAZOCILLIN [Concomitant]
     Active Substance: PIPERACILLIN SODIUM\TAZOBACTAM SODIUM
     Dates: start: 20170823
  10. AMBISOME [Suspect]
     Active Substance: AMPHOTERICIN B
     Dates: start: 20170828, end: 20170830
  11. ORACILLIN [Concomitant]
     Active Substance: PENICILLIN V BENZATHINE
  12. LUTERAN [Concomitant]
     Active Substance: CHLORMADINONE ACETATE
  13. METHOTREXATE. [Suspect]
     Active Substance: METHOTREXATE
     Route: 037
     Dates: start: 20170814, end: 20170817
  14. FLUCONAZOLE. [Suspect]
     Active Substance: FLUCONAZOLE
     Route: 042
     Dates: start: 20170825, end: 20170828
  15. BLINATUMOMAB [Concomitant]
     Active Substance: BLINATUMOMAB

REACTIONS (1)
  - Palmar-plantar erythrodysaesthesia syndrome [Recovering/Resolving]
